FAERS Safety Report 21370480 (Version 1)
Quarter: 2022Q3

REPORT INFORMATION
  Report Type: Report from Study
  Country: US (occurrence: US)
  Receive Date: 20220923
  Receipt Date: 20220923
  Transmission Date: 20221027
  Serious: Yes (Other)
  Sender: FDA-Public Use
  Company Number: US-BRISTOL-MYERS SQUIBB COMPANY-2022-080340

PATIENT
  Age: 37 Year
  Sex: Female
  Weight: 103.87 kg

DRUGS (10)
  1. REVLIMID [Suspect]
     Active Substance: LENALIDOMIDE
     Indication: Plasma cell myeloma
     Dosage: TAKE 1 CAPSULE DAILY ON DAYS 1 THROUGH EACH 28 DAY CYCLE
     Route: 048
     Dates: start: 20210118
  2. DEPO-PROVERA [Concomitant]
     Active Substance: MEDROXYPROGESTERONE ACETATE
     Indication: Product used for unknown indication
     Route: 065
  3. ASPIRIN TEVA [Concomitant]
     Indication: Product used for unknown indication
     Route: 065
  4. LISINOPRIL SECUBAR [Concomitant]
     Indication: Product used for unknown indication
     Route: 065
  5. VIRON [IRON] [Concomitant]
     Indication: Product used for unknown indication
     Route: 065
  6. ORETON [METHYLTESTOSTERONE] [Concomitant]
     Indication: Product used for unknown indication
     Route: 065
  7. EXUS HYDROCHLOROTHIAZIDE [Concomitant]
     Indication: Product used for unknown indication
     Route: 065
  8. DARZALEX [Concomitant]
     Active Substance: DARATUMUMAB
     Indication: Product used for unknown indication
     Route: 065
  9. VELCADE [Concomitant]
     Active Substance: BORTEZOMIB
     Indication: Product used for unknown indication
     Route: 065
  10. ACYCLOVIR KDC [Concomitant]
     Indication: Product used for unknown indication
     Route: 065

REACTIONS (5)
  - COVID-19 [Unknown]
  - Illness [Unknown]
  - Uterine disorder [Unknown]
  - Diarrhoea [Unknown]
  - Cyst [Unknown]

NARRATIVE: CASE EVENT DATE: 20220613
